FAERS Safety Report 4582084-3 (Version None)
Quarter: 2005Q1

REPORT INFORMATION
  Report Type: 
  Country: None (occurrence: None)
  Receive Date: 20050119
  Receipt Date: 20040628
  Transmission Date: 20050727
  Serious: Yes (Hospitalization)
  Sender: FDA-Public Use
  Company Number: A03200402066

PATIENT
  Age: 47 Year
  Sex: Female
  Weight: 68.0396 kg

DRUGS (16)
  1. PLAVIX [Suspect]
     Indication: CEREBROVASCULAR ACCIDENT PROPHYLAXIS
     Dosage: 75 MG QD - ORAL
     Route: 048
     Dates: start: 20030701, end: 20040601
  2. CELECOXIB [Concomitant]
  3. BUSPIRONE HCL [Concomitant]
  4. CLONIDINE HCL [Concomitant]
  5. METHOCARBAMOL [Concomitant]
  6. ATENOLOL [Concomitant]
  7. ALPRAZOLAM [Concomitant]
  8. LANSOPRAZOLE [Concomitant]
  9. PRAVASTATIN SODIUM [Concomitant]
  10. PAROXETINE HYDROCHLORIDE [Concomitant]
  11. TRAZODONE [Concomitant]
  12. FUROSEMIDE [Concomitant]
  13. NITROGLYCERIN [Concomitant]
  14. COMBIVENT [Concomitant]
  15. ACETYLSALICYLIC ACID SRT [Concomitant]
  16. SENNA [Concomitant]

REACTIONS (6)
  - CONTUSION [None]
  - HYPOTENSION [None]
  - LUNG DISORDER [None]
  - POST PROCEDURAL HAEMORRHAGE [None]
  - SCAR [None]
  - WOUND SECRETION [None]
